FAERS Safety Report 8959642 (Version 1)
Quarter: 2012Q4

REPORT INFORMATION
  Report Type: Report from Study
  Country: SE (occurrence: SE)
  Receive Date: 20121211
  Receipt Date: 20121211
  Transmission Date: 20130627
  Serious: Yes (Hospitalization)
  Sender: FDA-Public Use
  Company Number: SE-BAXTER-2012BAX026036

PATIENT
  Age: 77 Year
  Sex: Male
  Weight: 66 kg

DRUGS (4)
  1. CYTOXAN? (CYCLOPHOSPHAMIDE FOR INJECTION, USP) [Suspect]
     Indication: CLL
     Route: 048
  2. FLUDARABINE [Suspect]
     Indication: CLL
     Route: 048
  3. RITUXIMAB [Suspect]
     Indication: CLL
     Route: 042
     Dates: start: 20100816, end: 20100816
  4. RITUXIMAB [Suspect]
     Route: 042
     Dates: start: 20100920, end: 20100920

REACTIONS (3)
  - Chills [Recovered/Resolved]
  - Anaemia [Recovered/Resolved]
  - Arthralgia [Recovered/Resolved]
